FAERS Safety Report 6833544-3 (Version None)
Quarter: 2010Q3

REPORT INFORMATION
  Report Type: 
  Country: None (occurrence: None)
  Receive Date: 20100712
  Receipt Date: 20070328
  Transmission Date: 20110219
  Serious: No
  Sender: FDA-Public Use
  Company Number: US-PFIZER INC-2007025970

PATIENT
  Sex: Female
  Weight: 51.71 kg

DRUGS (5)
  1. CHANTIX [Suspect]
     Indication: SMOKING CESSATION THERAPY
     Dates: start: 20070314
  2. XANAX [Concomitant]
  3. CADUET [Concomitant]
  4. PREMARIN [Concomitant]
  5. TRAZODONE [Concomitant]
     Indication: SLEEP DISORDER

REACTIONS (4)
  - ABNORMAL DREAMS [None]
  - CONSTIPATION [None]
  - FLATULENCE [None]
  - SLEEP TALKING [None]
